FAERS Safety Report 7299445-4 (Version None)
Quarter: 2011Q1

REPORT INFORMATION
  Report Type: 
  Country: None (occurrence: None)
  Receive Date: 20110217
  Receipt Date: 20110208
  Transmission Date: 20110831
  Serious: Yes (Other)
  Sender: FDA-Public Use
  Company Number: B0700164A

PATIENT
  Sex: Female
  Weight: 68 kg

DRUGS (27)
  1. TAKEPRON [Concomitant]
     Dosage: 30MG PER DAY
     Route: 048
     Dates: start: 20090731
  2. ANTHROBIN P [Concomitant]
     Dosage: 1.5IU3 PER DAY
     Route: 042
     Dates: start: 20090731, end: 20090801
  3. ORGARAN [Concomitant]
     Dosage: 1.25IU3 PER DAY
     Route: 042
     Dates: start: 20090731, end: 20090810
  4. SEROQUEL [Concomitant]
     Dosage: 25MG PER DAY
     Route: 048
     Dates: start: 20090731, end: 20090820
  5. PASIL [Concomitant]
     Dosage: 1000MG PER DAY
     Route: 042
     Dates: start: 20090809, end: 20090814
  6. ADONA (AC-17) [Concomitant]
     Dosage: 50MG PER DAY
     Route: 048
     Dates: start: 20090810, end: 20090814
  7. SERENACE [Concomitant]
     Dosage: 5MG PER DAY
     Dates: start: 20090801, end: 20090818
  8. FUNGUARD [Concomitant]
     Dosage: 50MG PER DAY
     Route: 042
     Dates: start: 20090731, end: 20090814
  9. VELCADE [Concomitant]
     Dosage: 1MG PER DAY
     Dates: start: 20091022
  10. ALKERAN [Suspect]
     Indication: STEM CELL TRANSPLANT
     Dosage: 100MG PER DAY
     Route: 042
     Dates: start: 20090731, end: 20090801
  11. AMINO ACID INJ [Concomitant]
     Dosage: 200ML PER DAY
     Route: 042
     Dates: start: 20090802, end: 20090814
  12. BLOPRESS [Concomitant]
     Dosage: 4MG PER DAY
     Route: 048
     Dates: start: 20090731
  13. MEROPENEM [Concomitant]
     Dosage: 1.5G PER DAY
     Route: 042
     Dates: start: 20090803, end: 20090808
  14. ALBUMIN (HUMAN) [Concomitant]
     Dosage: 50MG PER DAY
     Route: 042
     Dates: start: 20090731, end: 20090801
  15. FLURBIPROFEN [Concomitant]
     Dosage: 25MG PER DAY
     Route: 042
     Dates: start: 20090821, end: 20090829
  16. URSO 250 [Concomitant]
     Dosage: 600MG PER DAY
     Route: 048
     Dates: start: 20090731, end: 20090827
  17. CALONAL [Concomitant]
     Dosage: 6G PER DAY
     Route: 048
     Dates: start: 20090731, end: 20090827
  18. NELBON [Concomitant]
     Dosage: 5MG PER DAY
     Route: 048
     Dates: start: 20090731, end: 20090820
  19. LENDORMIN [Concomitant]
     Dosage: .25MG PER DAY
     Route: 048
     Dates: start: 20090814, end: 20090821
  20. GRAN [Concomitant]
     Dosage: 450MCG PER DAY
     Dates: start: 20090806, end: 20090813
  21. TRYPTANOL [Concomitant]
     Dosage: 10MG PER DAY
     Route: 048
     Dates: start: 20090731
  22. FIRSTCIN [Concomitant]
     Dosage: 1G PER DAY
     Route: 042
     Dates: start: 20090731, end: 20090802
  23. FENTANYL [Concomitant]
     Dosage: .3MG PER DAY
     Route: 042
     Dates: start: 20090801, end: 20090817
  24. PROCHLORPERAZINE [Concomitant]
     Dosage: 15MG PER DAY
     Route: 048
     Dates: start: 20090731, end: 20090903
  25. UNKNOWN [Concomitant]
     Dosage: 500ML PER DAY
     Route: 042
     Dates: start: 20090802, end: 20090814
  26. UNKNOWN DRUG [Concomitant]
     Dosage: 1000ML PER DAY
     Route: 042
     Dates: start: 20090815, end: 20090826
  27. MYSLEE [Concomitant]
     Dosage: 10MG PER DAY
     Route: 048
     Dates: start: 20090821

REACTIONS (1)
  - GASTROINTESTINAL HAEMORRHAGE [None]
